FAERS Safety Report 9533257 (Version 1)
Quarter: 2013Q2

REPORT INFORMATION
  Report Type: Spontaneous
  Country: US (occurrence: None)
  Receive Date: 20130403
  Receipt Date: 20130403
  Transmission Date: 20140414
  Serious: Yes (Other)
  Sender: FDA-Public Use
  Company Number: US-2012-11391

PATIENT
  Age: 46 Month
  Sex: Male

DRUGS (4)
  1. BUSULFEX [Suspect]
     Indication: STEM CELL TRANSPLANT
     Route: 042
  2. FLUDARABINE (FLUDARABINE PHOSPHATE) [Concomitant]
  3. CYTOXAN (CYCLOSPHAMIDE) [Concomitant]
  4. ATG (ANTILYMPHOCYTE IMMUNOGLOBULIN (HORSE)) [Concomitant]

REACTIONS (2)
  - Parainfluenzae virus infection [None]
  - Acute graft versus host disease in skin [None]
